FAERS Safety Report 12037809 (Version 2)
Quarter: 2016Q2

REPORT INFORMATION
  Report Type: Report from Study
  Country: US (occurrence: US)
  Receive Date: 20160208
  Receipt Date: 20160616
  Transmission Date: 20160815
  Serious: Yes (Hospitalization, Other)
  Sender: FDA-Public Use
  Company Number: US-ABBVIE-15K-163-1528517-00

PATIENT
  Age: 80 Year
  Sex: Male
  Weight: 56.75 kg

DRUGS (20)
  1. COREG [Concomitant]
     Active Substance: CARVEDILOL
     Indication: CARDIAC DISORDER
  2. PANTOPRAZOLE [Concomitant]
     Active Substance: PANTOPRAZOLE SODIUM
     Indication: GASTROOESOPHAGEAL REFLUX DISEASE
  3. RANITIDINE. [Concomitant]
     Active Substance: RANITIDINE
     Indication: GASTROOESOPHAGEAL REFLUX DISEASE
  4. VITAMIN D3 [Concomitant]
     Active Substance: CHOLECALCIFEROL
     Indication: BONE DISORDER
  5. LEVOTHYROXINE. [Concomitant]
     Active Substance: LEVOTHYROXINE
     Indication: HYPOTHYROIDISM
  6. LISINOPRIL. [Concomitant]
     Active Substance: LISINOPRIL
     Indication: HYPERTENSION
  7. HUMIRA [Suspect]
     Active Substance: ADALIMUMAB
     Indication: CROHN^S DISEASE
     Route: 058
     Dates: start: 20150604, end: 201603
  8. CITRACAL [Concomitant]
     Active Substance: CALCIUM CITRATE
     Indication: MINERAL SUPPLEMENTATION
  9. COREG [Concomitant]
     Active Substance: CARVEDILOL
     Indication: HYPERTENSION
  10. ATORVASTATIN [Concomitant]
     Active Substance: ATORVASTATIN
     Indication: BLOOD CHOLESTEROL INCREASED
  11. TERAZOSIN [Concomitant]
     Active Substance: TERAZOSIN\TERAZOSIN HYDROCHLORIDE
     Indication: URINARY TRACT DISORDER
  12. PREDNISONE. [Concomitant]
     Active Substance: PREDNISONE
     Indication: PRODUCT USED FOR UNKNOWN INDICATION
  13. PENTASA [Concomitant]
     Active Substance: MESALAMINE
     Indication: CROHN^S DISEASE
  14. TYLENOL [Concomitant]
     Active Substance: ACETAMINOPHEN
     Indication: PAIN
  15. PENTASA [Concomitant]
     Active Substance: MESALAMINE
     Indication: CROHN^S DISEASE
  16. ASPIRIN. [Concomitant]
     Active Substance: ASPIRIN
     Indication: STENT PLACEMENT
  17. SYNTHROID [Concomitant]
     Active Substance: LEVOTHYROXINE SODIUM
     Indication: THYROID DISORDER
  18. CENTRUM SILVER [Concomitant]
     Active Substance: MINERALS\VITAMINS
     Indication: MINERAL SUPPLEMENTATION
  19. LIPITOR [Concomitant]
     Active Substance: ATORVASTATIN CALCIUM
     Indication: HYPERLIPIDAEMIA
  20. NITROGLYCERIN. [Concomitant]
     Active Substance: NITROGLYCERIN
     Indication: CARDIAC DISORDER

REACTIONS (8)
  - Enterobacter test positive [Recovering/Resolving]
  - Blood viscosity decreased [Unknown]
  - Spinal fracture [Recovered/Resolved]
  - Localised infection [Recovered/Resolved]
  - Cerebral haematoma [Recovered/Resolved]
  - Fall [Recovering/Resolving]
  - Paraspinal abscess [Recovering/Resolving]
  - Back pain [Unknown]

NARRATIVE: CASE EVENT DATE: 201510
